FAERS Safety Report 15595142 (Version 3)
Quarter: 2018Q4

REPORT INFORMATION
  Report Type: Spontaneous
  Country: FR (occurrence: FR)
  Receive Date: 20181107
  Receipt Date: 20181207
  Transmission Date: 20190205
  Serious: Yes (Hospitalization, Other)
  Sender: FDA-Public Use
  Company Number: FR-AMGEN-FRASP2018157029

PATIENT
  Sex: Female

DRUGS (1)
  1. PROLIA [Suspect]
     Active Substance: DENOSUMAB
     Indication: OSTEOPOROSIS
     Dosage: UNK
     Route: 065
     Dates: end: 201805

REACTIONS (6)
  - Lymphocytic leukaemia [Unknown]
  - Dental operation [Unknown]
  - Injury associated with device [Unknown]
  - Hyponatraemia [Unknown]
  - Osteonecrosis of jaw [Unknown]
  - Dental caries [Unknown]
